FAERS Safety Report 9695950 (Version 1)
Quarter: 2013Q4

REPORT INFORMATION
  Report Type: Spontaneous
  Country: US (occurrence: US)
  Receive Date: 20131119
  Receipt Date: 20131119
  Transmission Date: 20140711
  Serious: Yes (Hospitalization, Other)
  Sender: FDA-Public Use
  Company Number: US-009507513-1311USA005281

PATIENT
  Age: 19 Year
  Sex: Female
  Weight: 68.93 kg

DRUGS (2)
  1. IMPLANON [Suspect]
     Indication: CONTRACEPTION
     Dosage: UNK
     Route: 059
     Dates: start: 20130419
  2. ANTIMICROBIAL (UNSPECIFIED) [Concomitant]

REACTIONS (7)
  - Kidney infection [Unknown]
  - Surgery [Unknown]
  - Staphylococcal infection [Unknown]
  - Influenza like illness [Unknown]
  - Malaise [Unknown]
  - Alopecia [Recovering/Resolving]
  - Influenza [Unknown]
